FAERS Safety Report 6463598-8 (Version None)
Quarter: 2009Q4

REPORT INFORMATION
  Report Type: 
  Country: None (occurrence: None)
  Receive Date: 20091201
  Receipt Date: 20091125
  Transmission Date: 20100525
  Serious: Yes (Other)
  Sender: FDA-Public Use
  Company Number: AU-WYE-G04979709

PATIENT
  Age: 4 Year
  Sex: Female

DRUGS (1)
  1. ZOTON FASTAB [Suspect]

REACTIONS (4)
  - CONFUSIONAL STATE [None]
  - DYSGEUSIA [None]
  - HALLUCINATION [None]
  - LETHARGY [None]
